FAERS Safety Report 7490331-3 (Version None)
Quarter: 2011Q2

REPORT INFORMATION
  Report Type: 
  Country: None (occurrence: None)
  Receive Date: 20110512
  Receipt Date: 20110504
  Transmission Date: 20111010
  Serious: Yes (Other)
  Sender: FDA-Public Use
  Company Number: ACO_23134_2011

PATIENT
  Age: 42 Year
  Sex: Female
  Weight: 70.3 kg

DRUGS (7)
  1. AMPYRA [Suspect]
     Indication: GAIT DISTURBANCE
     Dosage: 10 MG, BID, ORAL
     Route: 048
     Dates: start: 20110301, end: 20110322
  2. FLONASE [Concomitant]
  3. LISINOPRIL [Concomitant]
  4. TIZANIDINE (TIZANIDINE) [Concomitant]
  5. ASMANEX TWISTHALER [Concomitant]
  6. TYSABRI [Concomitant]
  7. BACLOFEN [Concomitant]

REACTIONS (3)
  - PRESYNCOPE [None]
  - DIZZINESS [None]
  - LOSS OF CONSCIOUSNESS [None]
